FAERS Safety Report 6285152-3 (Version None)
Quarter: 2009Q3

REPORT INFORMATION
  Report Type: 
  Country: None (occurrence: None)
  Receive Date: 20090727
  Receipt Date: 20090723
  Transmission Date: 20100115
  Serious: Yes (Life-Threatening, Hospitalization, Disabling)
  Sender: FDA-Public Use
  Company Number: GB-BRISTOL-MYERS SQUIBB COMPANY-14713382

PATIENT
  Age: 60 Year
  Sex: Female
  Weight: 100 kg

DRUGS (9)
  1. PACLITAXEL [Suspect]
     Indication: BREAST CANCER
     Dates: end: 20070627
  2. CYCLOPHOSPHAMIDE [Suspect]
     Indication: BREAST CANCER
     Dates: end: 20070425
  3. EPIRUBICIN [Suspect]
     Indication: BREAST CANCER
     Dates: end: 20070425
  4. GEMCITABINE [Suspect]
     Indication: BREAST CANCER
     Dates: end: 20070627
  5. WARFARIN SODIUM [Concomitant]
     Route: 048
     Dates: start: 20080301
  6. LANSOPRAZOLE [Concomitant]
     Indication: PROPHYLAXIS
     Route: 048
  7. RAMIPRIL [Concomitant]
     Indication: CARDIAC DISORDER
     Route: 048
  8. SIMVASTATIN [Concomitant]
     Indication: CARDIAC DISORDER
     Route: 048
  9. DIHYDROCODEINE BITARTRATE INJ [Concomitant]
     Indication: PAIN
     Route: 048

REACTIONS (3)
  - DECREASED APPETITE [None]
  - DYSPNOEA [None]
  - FATIGUE [None]
